FAERS Safety Report 5775992-9 (Version None)
Quarter: 2008Q2

REPORT INFORMATION
  Report Type: 
  Country: None (occurrence: None)
  Receive Date: 20080613
  Receipt Date: 20080604
  Transmission Date: 20081010
  Serious: Yes (Hospitalization, Other)
  Sender: FDA-Public Use
  Company Number: TPA2008A00847

PATIENT
  Age: 71 Year
  Sex: Male
  Weight: 70.3075 kg

DRUGS (25)
  1. ACTOS [Suspect]
     Indication: TYPE 2 DIABETES MELLITUS
     Dosage: 15 MG, 1 IN 1 D, PER ORAL; 30 MG, 1 IN 1 D, PER ORAL
     Route: 048
     Dates: start: 20000101, end: 20050101
  2. ACTOS [Suspect]
     Indication: TYPE 2 DIABETES MELLITUS
     Dosage: 15 MG, 1 IN 1 D, PER ORAL; 30 MG, 1 IN 1 D, PER ORAL
     Route: 048
     Dates: start: 20050101
  3. OXYCODONE HCL [Suspect]
     Indication: PAIN
     Dosage: PER ORAL
     Route: 048
     Dates: start: 20070601
  4. METFORMIN HCL [Concomitant]
  5. GLUCOTROL [Concomitant]
  6. CYMBALTA [Concomitant]
  7. ACETAMINOPHEN [Concomitant]
  8. ASCORBIC ACID [Concomitant]
  9. MULTIVITAMIN [Concomitant]
  10. PROTONIX [Concomitant]
  11. OMEPRAZOLE [Concomitant]
  12. SENOKOT (LAXATIVES) [Concomitant]
  13. SOTALOL HCL [Concomitant]
  14. OXYGEN (OXYGEN) (2 LITERS) [Concomitant]
  15. GLIMEPIRIDE [Concomitant]
  16. JANUVIA (ORAL ANTIDIABETICS) [Concomitant]
  17. QUINAPRIL HCL [Concomitant]
  18. CRESTOR [Concomitant]
  19. FLOMAX [Concomitant]
  20. VESICARE [Concomitant]
  21. VITAMIN E [Concomitant]
  22. ASPIRIN [Concomitant]
  23. CARDIZEM [Concomitant]
  24. COUMADIN [Concomitant]
  25. PLAVIX [Concomitant]

REACTIONS (28)
  - ABSCESS [None]
  - ARTERIAL OCCLUSIVE DISEASE [None]
  - ASTHENIA [None]
  - BALANCE DISORDER [None]
  - BENIGN PROSTATIC HYPERPLASIA [None]
  - BONE DISORDER [None]
  - CARDIAC DISORDER [None]
  - CONSTIPATION [None]
  - CYSTITIS [None]
  - DIZZINESS [None]
  - DYSPNOEA [None]
  - FALL [None]
  - GALLBLADDER DISORDER [None]
  - GALLBLADDER ENLARGEMENT [None]
  - HAEMORRHAGE [None]
  - HEART RATE INCREASED [None]
  - IMPAIRED HEALING [None]
  - INCISION SITE COMPLICATION [None]
  - INCISION SITE INFECTION [None]
  - ORTHOSTATIC HYPOTENSION [None]
  - OXYGEN SATURATION DECREASED [None]
  - PAIN [None]
  - PELVIC FRACTURE [None]
  - PROSTATIC SPECIFIC ANTIGEN INCREASED [None]
  - PSEUDOMONAS INFECTION [None]
  - STAPHYLOCOCCAL INFECTION [None]
  - SWELLING [None]
  - THROMBOSIS [None]
